FAERS Safety Report 5076573-5 (Version None)
Quarter: 2006Q3

REPORT INFORMATION
  Report Type: 
  Country: None (occurrence: None)
  Receive Date: 20060725
  Receipt Date: 20060329
  Transmission Date: 20061208
  Serious: No
  Sender: FDA-Public Use
  Company Number: 200612007BWH

PATIENT
  Age: 49 Year
  Sex: Male

DRUGS (3)
  1. NEXAVAR [Suspect]
     Indication: RENAL CELL CARCINOMA STAGE UNSPECIFIED
     Dosage: 400 MG, BID, ORAL
     Route: 048
     Dates: start: 20060310
  2. WELLBUTRIN [Concomitant]
  3. ANTIHYPERTENSIVE MEDICATION (NOS) [Concomitant]

REACTIONS (1)
  - STOMATITIS [None]
